FAERS Safety Report 20679877 (Version 2)
Quarter: 2022Q2

REPORT INFORMATION
  Report Type: Spontaneous
  Country: BR (occurrence: BR)
  Receive Date: 20220406
  Receipt Date: 20220511
  Transmission Date: 20220721
  Serious: Yes (Other)
  Sender: FDA-Public Use
  Company Number: BR-ABBVIE-22K-020-4346712-00

PATIENT
  Sex: Female
  Weight: 78 kg

DRUGS (4)
  1. HUMIRA [Suspect]
     Active Substance: ADALIMUMAB
     Indication: Psoriasis
     Route: 058
     Dates: end: 2017
  2. STELARA [Suspect]
     Active Substance: USTEKINUMAB
     Indication: Product used for unknown indication
     Route: 065
  3. HUMAN PAPILLOMAVIRUS QUADRIVALENT (TYPES 6, 11, 16, AND 18) VACCINE, R [Concomitant]
     Active Substance: HUMAN PAPILLOMAVIRUS QUADRIVALENT (TYPES 6, 11, 16, AND 18) VACCINE, RECOMBINANT
     Indication: Product used for unknown indication
  4. VITAMIN D [Concomitant]
     Active Substance: VITAMIN D NOS
     Indication: Immune system disorder
     Route: 048

REACTIONS (9)
  - Cervix disorder [Recovered/Resolved]
  - Immunosuppression [Not Recovered/Not Resolved]
  - Vaginal discharge [Recovered/Resolved]
  - Throat irritation [Recovered/Resolved]
  - Uterine injury [Unknown]
  - Drug ineffective [Unknown]
  - Candida infection [Not Recovered/Not Resolved]
  - Herpes virus infection [Recovered/Resolved]
  - Psoriasis [Unknown]

NARRATIVE: CASE EVENT DATE: 20170101
